FAERS Safety Report 4839159-0 (Version None)
Quarter: 2005Q4

REPORT INFORMATION
  Report Type: 
  Country: None (occurrence: None)
  Receive Date: 20051128
  Receipt Date: 20051128
  Transmission Date: 20060501
  Serious: No
  Sender: FDA-Public Use
  Company Number: None

PATIENT
  Age: 61 Year
  Sex: Female
  Weight: 77.1115 kg

DRUGS (1)
  1. PROZAC [Suspect]
     Indication: DEPRESSION
     Dosage: 1 TABLET    DAILY   PO
     Route: 048
     Dates: start: 19990101, end: 20050515

REACTIONS (2)
  - ABNORMAL BEHAVIOUR [None]
  - RAPID EYE MOVEMENTS SLEEP ABNORMAL [None]
